FAERS Safety Report 14367945 (Version 1)
Quarter: 2018Q1

REPORT INFORMATION
  Report Type: Spontaneous
  Country: US (occurrence: US)
  Receive Date: 20180109
  Receipt Date: 20180109
  Transmission Date: 20180509
  Serious: No
  Sender: FDA-Public Use
  Company Number: US-ALLERGAN-1755133US

PATIENT
  Age: 87 Year
  Sex: Male

DRUGS (3)
  1. ZYVOX [Concomitant]
     Active Substance: LINEZOLID
     Indication: INFECTED SKIN ULCER
     Route: 048
  2. DALVANCE [Suspect]
     Active Substance: DALBAVANCIN
     Indication: INFECTED SKIN ULCER
     Dosage: 1500 MG, SINGLE
     Route: 042
     Dates: start: 20170922, end: 20170922
  3. INVANZ [Concomitant]
     Active Substance: ERTAPENEM SODIUM
     Indication: INFECTED SKIN ULCER
     Dosage: UNK
     Route: 042
     Dates: start: 20170210, end: 20170210

REACTIONS (4)
  - Chills [Recovered/Resolved]
  - Blood pressure increased [Recovered/Resolved]
  - Flank pain [Recovered/Resolved]
  - Drug hypersensitivity [Not Recovered/Not Resolved]

NARRATIVE: CASE EVENT DATE: 20170922
